FAERS Safety Report 7391278-3 (Version None)
Quarter: 2011Q2

REPORT INFORMATION
  Report Type: 
  Country: None (occurrence: None)
  Receive Date: 20110404
  Receipt Date: 20100621
  Transmission Date: 20111010
  Serious: No
  Sender: FDA-Public Use
  Company Number: US-PFIZER INC-2010077069

PATIENT
  Sex: Female

DRUGS (1)
  1. ZOLOFT [Suspect]
     Indication: PREMENSTRUAL SYNDROME
     Dosage: 100 MG, UNK

REACTIONS (3)
  - DISTURBANCE IN ATTENTION [None]
  - SOMNOLENCE [None]
  - FEELING ABNORMAL [None]
